FAERS Safety Report 17447181 (Version 1)
Quarter: 2020Q1

REPORT INFORMATION
  Report Type: Spontaneous
  Country: US (occurrence: US)
  Receive Date: 20200221
  Receipt Date: 20200221
  Transmission Date: 20200409
  Serious: Yes (Other)
  Sender: FDA-Public Use
  Company Number: US-AMNEAL PHARMACEUTICALS-2019AMN00561

PATIENT

DRUGS (1)
  1. METFORMIN HYDROCHLORIDE. [Suspect]
     Active Substance: METFORMIN HYDROCHLORIDE
     Indication: PRODUCT USED FOR UNKNOWN INDICATION
     Dosage: 4 TABLETS, 1X/DAY
     Route: 048
     Dates: start: 20180407, end: 20190329

REACTIONS (2)
  - Diabetes mellitus inadequate control [Unknown]
  - Product residue present [Unknown]

NARRATIVE: CASE EVENT DATE: 201804
